FAERS Safety Report 4948338-3 (Version None)
Quarter: 2006Q1

REPORT INFORMATION
  Report Type: 
  Country: None (occurrence: None)
  Receive Date: 20060320
  Receipt Date: 20060228
  Transmission Date: 20060701
  Serious: Yes (Death)
  Sender: FDA-Public Use
  Company Number: JP-ROCHE-438599

PATIENT
  Age: 63 Year
  Sex: Female
  Weight: 42 kg

DRUGS (11)
  1. VESANOID [Suspect]
     Indication: ACUTE PROMYELOCYTIC LEUKAEMIA
     Route: 048
     Dates: start: 20060206, end: 20060214
  2. ZEFFIX [Concomitant]
     Route: 048
     Dates: start: 20060206, end: 20060223
  3. CRAVIT [Concomitant]
     Route: 048
     Dates: start: 20060206, end: 20060223
  4. ITRIZOLE [Concomitant]
     Route: 048
     Dates: start: 20060206, end: 20060216
  5. BIOFERMIN R [Concomitant]
     Route: 048
     Dates: start: 20060206, end: 20060223
  6. ZYLORIC [Concomitant]
     Route: 048
     Dates: start: 20060206, end: 20060210
  7. ZYLORIC [Concomitant]
     Route: 048
     Dates: start: 20060211, end: 20060216
  8. IDAMYCIN [Concomitant]
     Route: 042
     Dates: start: 20060206, end: 20060208
  9. CYLOCIDE [Concomitant]
     Route: 042
     Dates: start: 20060206, end: 20060210
  10. FRAGMIN [Concomitant]
     Route: 042
     Dates: start: 20060206, end: 20060213
  11. MEROPEN [Concomitant]
     Dosage: EITHER 0.5G 2/1DAY, OR 1G 1/1DAY
     Route: 042
     Dates: start: 20060206, end: 20060223

REACTIONS (3)
  - INTERSTITIAL LUNG DISEASE [None]
  - RESPIRATORY FAILURE [None]
  - RETINOIC ACID SYNDROME [None]
